FAERS Safety Report 25654078 (Version 1)
Quarter: 2025Q3

REPORT INFORMATION
  Report Type: Report from Study
  Country: US (occurrence: US)
  Receive Date: 20250807
  Receipt Date: 20250807
  Transmission Date: 20251020
  Serious: Yes (Life-Threatening, Hospitalization)
  Sender: MYLAN
  Company Number: US-MYLANLABS-2025M1065582

PATIENT
  Age: 37 Year
  Sex: Female

DRUGS (16)
  1. LEVOTHYROXINE SODIUM [Suspect]
     Active Substance: LEVOTHYROXINE SODIUM
     Indication: Product used for unknown indication
  2. LEVOTHYROXINE SODIUM [Suspect]
     Active Substance: LEVOTHYROXINE SODIUM
     Route: 048
  3. LEVOTHYROXINE SODIUM [Suspect]
     Active Substance: LEVOTHYROXINE SODIUM
     Route: 048
  4. LEVOTHYROXINE SODIUM [Suspect]
     Active Substance: LEVOTHYROXINE SODIUM
  5. BENZONATATE [Suspect]
     Active Substance: BENZONATATE
     Indication: Product used for unknown indication
  6. BENZONATATE [Suspect]
     Active Substance: BENZONATATE
     Route: 048
  7. BENZONATATE [Suspect]
     Active Substance: BENZONATATE
     Route: 048
  8. BENZONATATE [Suspect]
     Active Substance: BENZONATATE
  9. METHOCARBAMOL [Suspect]
     Active Substance: METHOCARBAMOL
     Indication: Product used for unknown indication
  10. METHOCARBAMOL [Suspect]
     Active Substance: METHOCARBAMOL
     Route: 048
  11. METHOCARBAMOL [Suspect]
     Active Substance: METHOCARBAMOL
     Route: 048
  12. METHOCARBAMOL [Suspect]
     Active Substance: METHOCARBAMOL
  13. ALCOHOL [Suspect]
     Active Substance: ALCOHOL
     Indication: Product used for unknown indication
  14. ALCOHOL [Suspect]
     Active Substance: ALCOHOL
     Route: 048
  15. ALCOHOL [Suspect]
     Active Substance: ALCOHOL
     Route: 048
  16. ALCOHOL [Suspect]
     Active Substance: ALCOHOL

REACTIONS (1)
  - Intentional product use issue [Unknown]
